FAERS Safety Report 24722455 (Version 1)
Quarter: 2024Q4

REPORT INFORMATION
  Report Type: Spontaneous
  Country: HU (occurrence: HU)
  Receive Date: 20241211
  Receipt Date: 20241211
  Transmission Date: 20250114
  Serious: Yes (Death, Life-Threatening, Hospitalization, Other)
  Sender: INSUD PHARMA
  Company Number: None

PATIENT

DRUGS (27)
  1. FOSFOMYCIN [Suspect]
     Active Substance: FOSFOMYCIN
     Indication: Pneumonia klebsiella
     Dosage: 3 G, DAILY
     Route: 048
  2. CEFUROXIME [Suspect]
     Active Substance: CEFUROXIME
     Indication: Inflammation
     Dosage: 1.5 G, TID
     Route: 042
  3. CEFUROXIME [Suspect]
     Active Substance: CEFUROXIME
     Indication: Escherichia infection
  4. AVIBACTAM SODIUM\CEFTAZIDIME [Suspect]
     Active Substance: AVIBACTAM SODIUM\CEFTAZIDIME
     Indication: Sepsis
     Dosage: 2.5 G, TID
     Route: 042
     Dates: start: 20180707, end: 20180713
  5. AVIBACTAM SODIUM\CEFTAZIDIME [Suspect]
     Active Substance: AVIBACTAM SODIUM\CEFTAZIDIME
     Indication: Klebsiella infection
  6. AVIBACTAM SODIUM\CEFTAZIDIME [Suspect]
     Active Substance: AVIBACTAM SODIUM\CEFTAZIDIME
     Indication: Abdominal infection
  7. METRONIDAZOLE [Suspect]
     Active Substance: METRONIDAZOLE
     Indication: Prophylaxis
     Dosage: 100 ML, TID
     Route: 042
  8. METRONIDAZOLE [Suspect]
     Active Substance: METRONIDAZOLE
     Indication: Inflammation
  9. METRONIDAZOLE [Suspect]
     Active Substance: METRONIDAZOLE
     Indication: Clostridium difficile infection
  10. GENTAMICIN [Suspect]
     Active Substance: GENTAMICIN
     Indication: Enterobacter infection
     Dosage: 160 MG, DAILY
     Route: 042
  11. GENTAMICIN [Suspect]
     Active Substance: GENTAMICIN
     Indication: Pseudomonas infection
  12. GENTAMICIN [Suspect]
     Active Substance: GENTAMICIN
     Indication: Enterobacter infection
  13. MEROPENEM [Suspect]
     Active Substance: MEROPENEM
     Indication: Pneumonia klebsiella
     Dosage: 1 G, BID
     Route: 042
  14. VANCOMYCIN [Suspect]
     Active Substance: VANCOMYCIN
     Indication: Clostridium difficile infection
     Dosage: 125 MG, QID
     Route: 048
  15. FIDAXOMICIN [Suspect]
     Active Substance: FIDAXOMICIN
     Indication: Clostridium difficile infection
     Dosage: 200 MG, BID
  16. CILASTATIN SODIUM\IMIPENEM [Suspect]
     Active Substance: CILASTATIN SODIUM\IMIPENEM
     Indication: Enterococcal infection
     Dosage: 500 MG, QID
     Route: 042
  17. CILASTATIN SODIUM\IMIPENEM [Suspect]
     Active Substance: CILASTATIN SODIUM\IMIPENEM
     Indication: Renal impairment
     Dosage: 500 MG, BID
     Route: 042
  18. PIPERACILLIN AND TAZOBACTAM [Suspect]
     Active Substance: PIPERACILLIN SODIUM\TAZOBACTAM SODIUM
     Indication: Antibiotic therapy
     Dosage: 4.5 G, QID
     Route: 042
  19. AMOXICILLIN\CLAVULANIC ACID [Suspect]
     Active Substance: AMOXICILLIN\CLAVULANIC ACID
     Indication: Inflammation
     Dosage: 1.2 G, TID
     Route: 042
  20. AMOXICILLIN\CLAVULANIC ACID [Suspect]
     Active Substance: AMOXICILLIN\CLAVULANIC ACID
     Indication: Prophylaxis
  21. SULFAMETHOXAZOLE AND TRIMETHOPRIM [Suspect]
     Active Substance: SULFAMETHOXAZOLE\TRIMETHOPRIM
     Indication: Citrobacter infection
     Dosage: 400/80 MG ()
     Route: 048
  22. CEFTAZIDIME [Suspect]
     Active Substance: CEFTAZIDIME
     Indication: Pseudomonas infection
     Dosage: 2 G, TID
     Route: 042
  23. CEFTAZIDIME [Suspect]
     Active Substance: CEFTAZIDIME
     Indication: Enterobacter infection
  24. CEFTAZIDIME [Suspect]
     Active Substance: CEFTAZIDIME
     Indication: Enterobacter infection
  25. ASCORBIC ACID [Concomitant]
     Active Substance: ASCORBIC ACID
     Dosage: ()
  26. METHENAMINE [Concomitant]
     Active Substance: METHENAMINE
     Dosage: ()
  27. BETADINE [Concomitant]
     Active Substance: POVIDONE-IODINE
     Dosage: ()

REACTIONS (17)
  - Chills [Unknown]
  - Anaemia [Unknown]
  - Drug resistance [Unknown]
  - Hypoxia [Unknown]
  - Clostridium difficile infection [Not Recovered/Not Resolved]
  - Septic shock [Fatal]
  - Respiratory failure [Unknown]
  - Sepsis [Fatal]
  - Dyspnoea [Unknown]
  - Chest pain [Unknown]
  - Gastroenteritis [Unknown]
  - Product use in unapproved indication [Unknown]
  - Pathogen resistance [Fatal]
  - Pyrexia [Unknown]
  - Malaise [Unknown]
  - Melaena [Unknown]
  - Diarrhoea [Unknown]

NARRATIVE: CASE EVENT DATE: 20180718
